FAERS Safety Report 8564357-2 (Version None)
Quarter: 2012Q3

REPORT INFORMATION
  Report Type: 
  Country: None (occurrence: None)
  Receive Date: 20120803
  Receipt Date: 20120727
  Transmission Date: 20120928
  Serious: Yes (Hospitalization)
  Sender: FDA-Public Use
  Company Number: FR-SANOFI-AVENTIS-2012SA053393

PATIENT
  Age: 60 Year
  Sex: Male

DRUGS (2)
  1. KERLONE [Suspect]
     Route: 048
     Dates: start: 20120613, end: 20120629
  2. ISOPTIN [Suspect]
     Route: 048
     Dates: start: 20120613, end: 20120629

REACTIONS (3)
  - SHOCK [None]
  - RENAL FAILURE ACUTE [None]
  - HYPOTENSION [None]
